FAERS Safety Report 6411578-0 (Version None)
Quarter: 2009Q4

REPORT INFORMATION
  Report Type: 
  Country: None (occurrence: None)
  Receive Date: 20091023
  Receipt Date: 20091015
  Transmission Date: 20100525
  Serious: Yes (Hospitalization)
  Sender: FDA-Public Use
  Company Number: NL-AMGEN-US362873

PATIENT
  Age: 50 Year
  Sex: Female
  Weight: 84 kg

DRUGS (11)
  1. ENBREL [Suspect]
     Indication: ANKYLOSING SPONDYLITIS
     Route: 058
     Dates: start: 20080601
  2. BUTAZOLIDIN [Suspect]
     Indication: ANKYLOSING SPONDYLITIS
     Dates: end: 20080701
  3. CELLUVISC [Concomitant]
     Dosage: UNIT DOSE 10 MG/ML, 1 TO 4 TIMES A DAY 1 DROP IN BOTH EYES
     Dates: start: 20080522
  4. DIOVAN HCT [Concomitant]
     Indication: HYPERTENSION
     Dosage: 320/25 MG 1 TIME PER DAY
     Dates: start: 20080930
  5. TRIAMCINOLONE [Concomitant]
     Dosage: 1 MG/G, 2 TIMES A DAY
     Dates: start: 20020521
  6. DERMOVATE [Concomitant]
     Dates: start: 20090408
  7. NEXIUM [Concomitant]
     Indication: PROPHYLAXIS
     Dates: start: 20040225
  8. THYRAX [Concomitant]
     Indication: HYPOTHYROIDISM
     Dates: start: 20080408
  9. TRAMADOL HCL [Concomitant]
     Indication: PAIN
     Dates: start: 20010315
  10. TRAMADOL HCL [Concomitant]
     Dates: start: 20060526
  11. CRESTOR [Concomitant]
     Indication: HYPERCHOLESTEROLAEMIA
     Dates: start: 20070529

REACTIONS (4)
  - ABDOMINAL PAIN [None]
  - CHOLECYSTITIS [None]
  - CHOLELITHIASIS [None]
  - GASTRIC DISORDER [None]
